FAERS Safety Report 19729550 (Version 1)
Quarter: 2021Q3

REPORT INFORMATION
  Report Type: Spontaneous
  Country: US (occurrence: US)
  Receive Date: 20210821
  Receipt Date: 20210821
  Transmission Date: 20211014
  Serious: Yes (Other)
  Sender: FDA-Public Use
  Company Number: US-AUROBINDO-AUR-APL-2021-034979

PATIENT
  Age: 75 Year
  Sex: Male

DRUGS (8)
  1. LEVETIRACETAM. [Suspect]
     Active Substance: LEVETIRACETAM
     Indication: PARTIAL SEIZURES
     Dosage: UNK
     Route: 065
  2. LACOSAMIDE. [Concomitant]
     Active Substance: LACOSAMIDE
     Indication: SEIZURE PROPHYLAXIS
     Dosage: UNK
     Route: 065
  3. VALPROATE SODIUM. [Concomitant]
     Active Substance: VALPROATE SODIUM
     Indication: SEIZURE PROPHYLAXIS
     Dosage: UNK
     Route: 065
  4. PHENOBARBITAL. [Concomitant]
     Active Substance: PHENOBARBITAL
     Indication: SEIZURE PROPHYLAXIS
     Dosage: UNK
     Route: 065
  5. CLOBAZAM. [Concomitant]
     Active Substance: CLOBAZAM
     Indication: SEIZURE PROPHYLAXIS
     Dosage: UNK
     Route: 065
  6. PHENYTOIN. [Concomitant]
     Active Substance: PHENYTOIN
     Indication: SEIZURE PROPHYLAXIS
     Dosage: UNK
     Route: 065
  7. OXCARBAZEPINE. [Concomitant]
     Active Substance: OXCARBAZEPINE
     Indication: SEIZURE PROPHYLAXIS
     Dosage: UNK
     Route: 065
  8. TOPIRAMATE. [Concomitant]
     Active Substance: TOPIRAMATE
     Indication: SEIZURE PROPHYLAXIS
     Dosage: UNK
     Route: 065

REACTIONS (1)
  - Drug ineffective [Unknown]
